FAERS Safety Report 7335385-X (Version None)
Quarter: 2011Q1

REPORT INFORMATION
  Report Type: 
  Country: None (occurrence: None)
  Receive Date: 20110228
  Receipt Date: 20110105
  Transmission Date: 20110831
  Serious: Yes (Death)
  Sender: FDA-Public Use
  Company Number: US-000359

PATIENT
  Age: 27 Year
  Sex: Female

DRUGS (2)
  1. UNSPECIFIED INSOMNIA MEDICATIONS [Suspect]
  2. TRAZODONE HCL [Suspect]

REACTIONS (1)
  - OVERDOSE [None]
